FAERS Safety Report 9163339 (Version 1)
Quarter: 2013Q1

REPORT INFORMATION
  Report Type: Report from Study
  Country: AU (occurrence: AU)
  Receive Date: 20130314
  Receipt Date: 20130314
  Transmission Date: 20140127
  Serious: Yes (Other)
  Sender: FDA-Public Use
  Company Number: AU-ROCHE-1200992

PATIENT
  Sex: 0

DRUGS (7)
  1. BEVACIZUMAB [Suspect]
     Indication: COLORECTAL CANCER
     Route: 065
  2. IMATINIB [Suspect]
     Indication: COLORECTAL CANCER
     Route: 065
  3. IMATINIB [Suspect]
     Route: 065
  4. OXALIPLATIN [Suspect]
     Indication: COLORECTAL CANCER
     Route: 065
  5. LEUCOVORIN [Suspect]
     Indication: COLORECTAL CANCER
     Route: 065
  6. 5-FU [Suspect]
     Indication: COLORECTAL CANCER
     Route: 065
  7. 5-FU [Suspect]
     Dosage: G/M2/46 H.
     Route: 065

REACTIONS (8)
  - Febrile neutropenia [Unknown]
  - Fatigue [Unknown]
  - Hypertension [Unknown]
  - Nausea [Unknown]
  - Vomiting [Unknown]
  - Peripheral sensory neuropathy [Unknown]
  - Gamma-glutamyltransferase [Unknown]
  - Neutropenia [Unknown]
